FAERS Safety Report 15387985 (Version 3)
Quarter: 2018Q4

REPORT INFORMATION
  Report Type: Report from Study
  Country: US (occurrence: US)
  Receive Date: 20180915
  Receipt Date: 20181213
  Transmission Date: 20190204
  Serious: Yes (Other)
  Sender: FDA-Public Use
  Company Number: PHEH2018US037752

PATIENT
  Age: 45 Year
  Sex: Male

DRUGS (2)
  1. COSENTYX [Suspect]
     Active Substance: SECUKINUMAB
     Indication: PSORIASIS
     Dosage: 300 MG, QMO (Q4W)
     Route: 058
  2. COSENTYX [Suspect]
     Active Substance: SECUKINUMAB
     Dosage: 300 MG, Q2W (150 MG FIRST WEEK AND 150 MG FOLLOWING WEEK)
     Route: 058

REACTIONS (3)
  - Drug ineffective [Unknown]
  - Burns third degree [Unknown]
  - Psoriasis [Unknown]

NARRATIVE: CASE EVENT DATE: 20181126
